FAERS Safety Report 5120749-5 (Version None)
Quarter: 2006Q4

REPORT INFORMATION
  Report Type: 
  Country: None (occurrence: None)
  Receive Date: 20061003
  Receipt Date: 20061003
  Transmission Date: 20070319
  Serious: Yes (Life-Threatening, Disabling)
  Sender: FDA-Public Use
  Company Number: None

PATIENT
  Age: 49 Year
  Sex: Female
  Weight: 92.9874 kg

DRUGS (2)
  1. SEROQUEL [Suspect]
     Dosage: TWO N/B DAILY 90
     Dates: start: 20020101
  2. SEROQUEL [Suspect]

REACTIONS (6)
  - DEPRESSION [None]
  - DIABETES MELLITUS [None]
  - HYPERSENSITIVITY [None]
  - HYPERTENSION [None]
  - OVERWEIGHT [None]
  - UNEVALUABLE EVENT [None]
